FAERS Safety Report 20878048 (Version 2)
Quarter: 2022Q3

REPORT INFORMATION
  Report Type: Spontaneous
  Country: US (occurrence: US)
  Receive Date: 20220526
  Receipt Date: 20220707
  Transmission Date: 20221027
  Serious: Yes (Other)
  Sender: FDA-Public Use
  Company Number: US-PFIZER INC-202200757405

PATIENT
  Age: 58 Year
  Sex: Female

DRUGS (4)
  1. XELJANZ XR [Suspect]
     Active Substance: TOFACITINIB CITRATE
     Indication: Rheumatoid arthritis
     Dosage: 11 MG, 1X/DAY
     Route: 048
     Dates: start: 2012
  2. XELJANZ XR [Suspect]
     Active Substance: TOFACITINIB CITRATE
     Dosage: 11 MG, ALTERNATE DAY
     Route: 048
  3. XELJANZ XR [Suspect]
     Active Substance: TOFACITINIB CITRATE
     Dosage: 11 MG, ALTERNATE DAY
     Route: 048
     Dates: start: 201201
  4. SYNTHROID [Concomitant]
     Active Substance: LEVOTHYROXINE SODIUM
     Indication: Thyroid disorder
     Dosage: UNK

REACTIONS (12)
  - Sjogren^s syndrome [Unknown]
  - Gastric disorder [Unknown]
  - Irritable bowel syndrome [Unknown]
  - Constipation [Unknown]
  - Abdominal discomfort [Unknown]
  - Anxiety [Unknown]
  - Depression [Unknown]
  - Feeling abnormal [Unknown]
  - Eye disorder [Unknown]
  - Hepatic enzyme increased [Unknown]
  - Therapeutic product effect incomplete [Unknown]
  - Off label use [Unknown]
